FAERS Safety Report 7638902-5 (Version None)
Quarter: 2011Q3

REPORT INFORMATION
  Report Type: 
  Country: None (occurrence: None)
  Receive Date: 20110726
  Receipt Date: 20110726
  Transmission Date: 20111222
  Serious: Yes (Other)
  Sender: FDA-Public Use
  Company Number: None

PATIENT
  Sex: Female

DRUGS (1)
  1. SPIRIVA [Suspect]
     Indication: ASTHMA
     Dosage: ONCE PER DAY ORALLY INHALED
     Route: 048

REACTIONS (2)
  - VASCULAR RUPTURE [None]
  - CAPSULE PHYSICAL ISSUE [None]
